FAERS Safety Report 4479036-0 (Version None)
Quarter: 2004Q4

REPORT INFORMATION
  Report Type: 
  Country: None (occurrence: None)
  Receive Date: 20040923
  Receipt Date: 20040806
  Transmission Date: 20050328
  Serious: No
  Sender: FDA-Public Use
  Company Number: 208313

PATIENT
  Sex: Male

DRUGS (5)
  1. AVASTIN [Suspect]
     Indication: NEOPLASM MALIGNANT
     Dosage: INTRAVENOUS
     Route: 042
     Dates: start: 20040716
  2. IRINOTECAN HCL [Concomitant]
  3. LEUCOVORIN (LEUCOVORIN CALCIUM) [Concomitant]
  4. OXALIPLATIN (OXALIPLATIN) [Concomitant]
  5. FLUOROURACIL [Concomitant]

REACTIONS (2)
  - DYSPNOEA [None]
  - HOARSENESS [None]
